FAERS Safety Report 20590327 (Version 1)
Quarter: 2022Q1

REPORT INFORMATION
  Report Type: Report from Study
  Country: CA (occurrence: CA)
  Receive Date: 20220314
  Receipt Date: 20220314
  Transmission Date: 20220424
  Serious: Yes (Other)
  Sender: FDA-Public Use
  Company Number: CA-GILEAD-2021-0562119

PATIENT
  Age: 59 Year
  Sex: Female
  Weight: 77 kg

DRUGS (18)
  1. SACITUZUMAB GOVITECAN [Suspect]
     Active Substance: SACITUZUMAB GOVITECAN
     Indication: Triple negative breast cancer
     Dosage: 600 MG
     Route: 042
     Dates: start: 20211215
  2. SACITUZUMAB GOVITECAN [Suspect]
     Active Substance: SACITUZUMAB GOVITECAN
     Dosage: 800 MG, DAY 1 OF A NEW CYCLE
     Route: 042
     Dates: start: 20220106
  3. SACITUZUMAB GOVITECAN [Suspect]
     Active Substance: SACITUZUMAB GOVITECAN
     Dosage: C2D1
     Route: 042
     Dates: start: 20220202, end: 20220202
  4. SACITUZUMAB GOVITECAN [Suspect]
     Active Substance: SACITUZUMAB GOVITECAN
     Dosage: C2D15
     Route: 042
     Dates: start: 20220216, end: 20220216
  5. AKYNZEO [Concomitant]
     Active Substance: NETUPITANT\PALONOSETRON HYDROCHLORIDE
     Dosage: PRE-MEDICATION PRIOR TO TRODELVY)
     Route: 048
  6. DEXAMETHASONE [Concomitant]
     Active Substance: DEXAMETHASONE
     Dosage: 8 MG   (PRE-MEDICATION PRIOR TO TRODELVY)
     Route: 048
  7. DEXAMETHASONE [Concomitant]
     Active Substance: DEXAMETHASONE
     Dosage: 8 MG PO  (PRE-MEDICATION PRIOR TO TRODELVY)
  8. DEXAMETHASONE [Concomitant]
     Active Substance: DEXAMETHASONE
     Dosage: 8 MG PO (PRE-MEDICATION PRIOR TO TRODELVY)
  9. DEXAMETHASONE [Concomitant]
     Active Substance: DEXAMETHASONE
     Dosage: 8 MGPO (PRE-MEDICATION PRIOR TO TRODELVY)
  10. DEXAMETHASONE [Concomitant]
     Active Substance: DEXAMETHASONE
     Dosage: 8 MG PO (PRE-MEDICATION PRIOR TO TRODELVY)
  11. CETIRIZINE HYDROCHLORIDE [Concomitant]
     Active Substance: CETIRIZINE HYDROCHLORIDE
     Dosage: 20 MG (PRE-MEDICATION PRIOR TO TRODELVY)
     Route: 048
  12. CETIRIZINE HYDROCHLORIDE [Concomitant]
     Active Substance: CETIRIZINE HYDROCHLORIDE
     Dosage: 20 MG PO  (PRE-MEDICATION PRIOR TO TRODELVY)
  13. CETIRIZINE HYDROCHLORIDE [Concomitant]
     Active Substance: CETIRIZINE HYDROCHLORIDE
     Dosage: 20 MGPO (PRE-MEDICATION PRIOR TO TRODELVY)
  14. CETIRIZINE HYDROCHLORIDE [Concomitant]
     Active Substance: CETIRIZINE HYDROCHLORIDE
     Dosage: 20 MG PO (PRE-MEDICATION PRIOR TO TRODELVY)
  15. CETIRIZINE HYDROCHLORIDE [Concomitant]
     Active Substance: CETIRIZINE HYDROCHLORIDE
     Dosage: 20 MG PO (PRE-MEDICATION PRIOR TO TRODELVY)
  16. CARBOPLATIN\GEMCITABINE [Concomitant]
     Active Substance: CARBOPLATIN\GEMCITABINE
  17. PACLITAXEL [Concomitant]
     Active Substance: PACLITAXEL
  18. CAPECITABINE [Concomitant]
     Active Substance: CAPECITABINE

REACTIONS (18)
  - Disease progression [Not Recovered/Not Resolved]
  - Oxygen saturation decreased [Recovered/Resolved]
  - Blood test abnormal [Unknown]
  - Weight decreased [Unknown]
  - Neutropenia [Unknown]
  - Fatigue [Unknown]
  - Laboratory test abnormal [Unknown]
  - Weight fluctuation [Unknown]
  - Blood test abnormal [Recovered/Resolved]
  - Malaise [Not Recovered/Not Resolved]
  - Burn oesophageal [Not Recovered/Not Resolved]
  - Pain [Recovering/Resolving]
  - Aphasia [Recovered/Resolved]
  - Thinking abnormal [Recovered/Resolved]
  - Neutrophil count abnormal [Unknown]
  - Product dose omission issue [Unknown]
  - Inappropriate schedule of product administration [Unknown]
  - Product dose omission issue [Recovered/Resolved]

NARRATIVE: CASE EVENT DATE: 20211215
